FAERS Safety Report 12525697 (Version 2)
Quarter: 2016Q3

REPORT INFORMATION
  Report Type: Spontaneous
  Country: DK (occurrence: DK)
  Receive Date: 20160705
  Receipt Date: 20160720
  Transmission Date: 20161109
  Serious: Yes (Disabling)
  Sender: FDA-Public Use
  Company Number: DK-BRISTOL-MYERS SQUIBB COMPANY-BMS-2016-052712

PATIENT
  Age: 15 Year
  Sex: Female
  Weight: 80 kg

DRUGS (3)
  1. SERTRALINE [Concomitant]
     Active Substance: SERTRALINE HYDROCHLORIDE
     Indication: DEPRESSION
     Dosage: 75 MG, QD
     Route: 048
     Dates: start: 20130404, end: 20160201
  2. TRUXAL                             /00012101/ [Concomitant]
     Active Substance: CHLORPROTHIXENE
     Indication: SEDATIVE THERAPY
     Dosage: 30 MG, UNK
     Route: 065
     Dates: start: 20141003, end: 20150121
  3. ABILIFY [Suspect]
     Active Substance: ARIPIPRAZOLE
     Indication: ANXIETY
     Dosage: 1 DF, UNK
     Route: 048
     Dates: start: 20120416

REACTIONS (13)
  - Hiccups [Recovered/Resolved]
  - Dystonia [Recovered/Resolved]
  - Product use issue [Unknown]
  - Bruxism [Recovered/Resolved]
  - Tic [Recovered/Resolved]
  - Derealisation [Recovered/Resolved]
  - Eye swelling [Recovered/Resolved]
  - Tongue movement disturbance [Recovered/Resolved]
  - Constipation [Recovered/Resolved]
  - Strabismus [Recovered/Resolved]
  - Apathy [Recovered/Resolved]
  - Speech disorder [Recovered/Resolved]
  - Restlessness [Recovered/Resolved]

NARRATIVE: CASE EVENT DATE: 20121031
